FAERS Safety Report 15916631 (Version 1)
Quarter: 2019Q1

REPORT INFORMATION
  Report Type: Spontaneous
  Country: US (occurrence: US)
  Receive Date: 20190205
  Receipt Date: 20190205
  Transmission Date: 20190417
  Serious: No
  Sender: FDA-Public Use
  Company Number: US-TEVA-2019-US-996454

PATIENT

DRUGS (1)
  1. FAMOTIDINE. [Suspect]
     Active Substance: FAMOTIDINE
     Route: 065

REACTIONS (6)
  - Throat irritation [Unknown]
  - Product odour abnormal [Unknown]
  - Dysphonia [Unknown]
  - Scratch [Unknown]
  - Dysgeusia [Unknown]
  - Hypersensitivity [Unknown]
